FAERS Safety Report 6037759-6 (Version None)
Quarter: 2009Q1

REPORT INFORMATION
  Report Type: 
  Country: None (occurrence: None)
  Receive Date: 20090114
  Receipt Date: 20090105
  Transmission Date: 20090719
  Serious: Yes (Hospitalization, Other)
  Sender: FDA-Public Use
  Company Number: LB-MERCK-0812USA04144

PATIENT
  Age: 56 Year
  Sex: Female
  Weight: 230 kg

DRUGS (6)
  1. JANUVIA [Suspect]
     Indication: DIABETES MELLITUS
     Route: 048
     Dates: start: 20081101, end: 20081110
  2. ATACAND HCT [Concomitant]
     Indication: HYPERTENSION
     Route: 048
     Dates: end: 20081112
  3. ZYLORIC [Concomitant]
     Indication: HYPERURICAEMIA
     Route: 048
     Dates: end: 20081102
  4. GLUCOPHAGE [Concomitant]
     Indication: DIABETES MELLITUS
     Route: 048
  5. CONCOR [Concomitant]
     Indication: HYPERTENSION
     Route: 048
     Dates: end: 20081101
  6. SIBUTRAMINE HYDROCHLORIDE [Suspect]
     Route: 065
     Dates: start: 20081101, end: 20081110

REACTIONS (2)
  - ERYTHEMA MULTIFORME [None]
  - STEVENS-JOHNSON SYNDROME [None]
